FAERS Safety Report 7906080-0 (Version None)
Quarter: 2011Q4

REPORT INFORMATION
  Report Type: 
  Country: None (occurrence: None)
  Receive Date: 20111110
  Receipt Date: 20111107
  Transmission Date: 20120403
  Serious: Yes (Hospitalization, Disabling, Other)
  Sender: FDA-Public Use
  Company Number: US-BRISTOL-MYERS SQUIBB COMPANY-14101661

PATIENT
  Age: 87 Year
  Sex: Male

DRUGS (9)
  1. UROXATRAL [Concomitant]
     Dosage: 1G AT BEDTIME - WAS STOPPED 18FEB2008 AND RESTARTED ON 24FEB2008
     Route: 048
     Dates: start: 20080224
  2. ASPIRIN [Concomitant]
     Route: 048
     Dates: start: 20080209, end: 20080219
  3. IPILIMUMAB [Suspect]
     Indication: MALIGNANT MELANOMA
     Dosage: RECENT DATE: 01-FEB-2008
     Route: 042
     Dates: start: 20080111, end: 20080201
  4. ACETAMINOPHEN [Concomitant]
  5. THYROID TAB [Concomitant]
     Dosage: UNK-11JAN07,75 MCG PRESTUDY-11JAN2008 100MCG DAILY 12JAN-01FEB2008 87.5MCG DAILY 01FEB2008-CONTI.
     Route: 048
     Dates: start: 20080201
  6. LIDEX [Concomitant]
  7. LEVOTHYROXINE SODIUM [Concomitant]
     Dates: start: 20080202
  8. FLOMAX [Concomitant]
     Dates: start: 20080209, end: 20080219
  9. ANDROGEL [Concomitant]
     Dates: end: 20080201

REACTIONS (3)
  - PRURITUS [None]
  - HYPOPHYSITIS [None]
  - MUSCULOSKELETAL PAIN [None]
